FAERS Safety Report 14689063 (Version 1)
Quarter: 2018Q1

REPORT INFORMATION
  Report Type: Spontaneous
  Country: FR (occurrence: FR)
  Receive Date: 20180328
  Receipt Date: 20180328
  Transmission Date: 20180509
  Serious: Yes (Hospitalization)
  Sender: FDA-Public Use
  Company Number: FR-ROCHE-2090184

PATIENT
  Age: 25 Year
  Sex: Female

DRUGS (11)
  1. SEROPLEX [Suspect]
     Active Substance: ESCITALOPRAM OXALATE
     Indication: ANXIETY DISORDER
     Route: 048
     Dates: start: 201706
  2. MARINOL [Suspect]
     Active Substance: DRONABINOL
     Indication: CENTRAL PAIN SYNDROME
     Route: 048
     Dates: start: 201703
  3. ACUPAN [Suspect]
     Active Substance: NEFOPAM HYDROCHLORIDE
     Indication: CENTRAL PAIN SYNDROME
     Route: 058
     Dates: start: 201711
  4. CYMBALTA [Concomitant]
     Active Substance: DULOXETINE HYDROCHLORIDE
     Indication: CENTRAL PAIN SYNDROME
     Route: 048
     Dates: start: 2015, end: 201706
  5. THERALENE [Concomitant]
     Active Substance: TRIMEPRAZINE
     Indication: SLEEP DISORDER
     Route: 048
     Dates: start: 201801, end: 20180119
  6. DAFALGAN CODEINE [Concomitant]
     Active Substance: ACETAMINOPHEN\CODEINE PHOSPHATE
     Indication: CENTRAL PAIN SYNDROME
     Route: 048
     Dates: start: 201711
  7. ATARAX [Suspect]
     Active Substance: HYDROXYZINE HYDROCHLORIDE
     Indication: ANXIETY DISORDER
     Route: 048
     Dates: start: 201711
  8. RIVOTRIL [Suspect]
     Active Substance: CLONAZEPAM
     Indication: CENTRAL PAIN SYNDROME
     Route: 048
  9. MELATONINE [Concomitant]
     Active Substance: MELATONIN
     Indication: SLEEP DISORDER
     Route: 048
     Dates: start: 20180119
  10. DONORMYL (DOXYLAMINE SUCCINATE) [Suspect]
     Active Substance: DOXYLAMINE SUCCINATE
     Indication: SLEEP DISORDER
     Route: 048
     Dates: start: 201801
  11. LEVOCARNIL [Concomitant]
     Active Substance: LEVOCARNITINE
     Indication: CARNITINE DEFICIENCY
     Dosage: 100 MG/ML
     Route: 065
     Dates: start: 201711

REACTIONS (2)
  - Malaise [Recovered/Resolved]
  - Loss of consciousness [Recovered/Resolved]

NARRATIVE: CASE EVENT DATE: 20171026
